FAERS Safety Report 5267283-X (Version None)
Quarter: 2007Q1

REPORT INFORMATION
  Report Type: 
  Country: None (occurrence: None)
  Receive Date: 20070316
  Receipt Date: 20070308
  Transmission Date: 20070707
  Serious: Yes (Death)
  Sender: FDA-Public Use
  Company Number: GB-GLAXOSMITHKLINE-B0333282A

PATIENT
  Age: 50 Year
  Sex: Male

DRUGS (2)
  1. PAROXETINE HCL [Suspect]
     Route: 065
     Dates: start: 19990101, end: 20030101
  2. ANTIDEPRESSANT (UNSPECIFIED) [Concomitant]
     Route: 065
     Dates: start: 20030101

REACTIONS (4)
  - COMPLETED SUICIDE [None]
  - DEPRESSION [None]
  - DRUG WITHDRAWAL SYNDROME [None]
  - INTENTIONAL SELF-INJURY [None]
